FAERS Safety Report 4366431-3 (Version None)
Quarter: 2004Q2

REPORT INFORMATION
  Report Type: 
  Country: None (occurrence: None)
  Receive Date: 20040527
  Receipt Date: 20040322
  Transmission Date: 20050107
  Serious: No
  Sender: FDA-Public Use
  Company Number: US-BRISTOL-MYERS SQUIBB COMPANY-12538914

PATIENT
  Sex: Male

DRUGS (8)
  1. ERBITUX [Suspect]
     Indication: COLON CANCER
     Route: 042
     Dates: start: 20040315, end: 20040315
  2. TYLENOL [Concomitant]
     Indication: PREMEDICATION
  3. BENADRYL [Concomitant]
     Indication: PREMEDICATION
  4. DECADRON [Concomitant]
  5. ALOXI [Concomitant]
  6. LEUCOVORIN CALCIUM [Concomitant]
  7. FLUOROURACIL [Concomitant]
  8. CAMPTOSAR [Concomitant]

REACTIONS (1)
  - DERMATITIS ACNEIFORM [None]
